FAERS Safety Report 8862764 (Version 1)
Quarter: 2012Q4

REPORT INFORMATION
  Report Type: 
  Country: US (occurrence: US)
  Receive Date: 20121026
  Receipt Date: 20121026
  Transmission Date: 20130627
  Serious: No
  Sender: FDA-Public Use
  Company Number: US-ALLERGAN-1211113US

PATIENT
  Sex: Female

DRUGS (3)
  1. ALPHAGAN P [Suspect]
     Indication: VISUAL FIELD DEFECT
     Dosage: 2 UNK, UNK
     Route: 047
     Dates: start: 201206
  2. LATANOPROST [Concomitant]
     Indication: DRUG USE FOR UNKNOWN INDICATION
     Dosage: 2 Gtt, UNK
  3. VIT B SHOTS [Concomitant]

REACTIONS (6)
  - Diarrhoea [Unknown]
  - Fall [Unknown]
  - Visual acuity reduced [Not Recovered/Not Resolved]
  - Vision blurred [Unknown]
  - Dizziness [Recovering/Resolving]
  - Hypotension [Unknown]
